FAERS Safety Report 23187266 (Version 1)
Quarter: 2023Q4

REPORT INFORMATION
  Report Type: Spontaneous
  Country: US (occurrence: US)
  Receive Date: 20231115
  Receipt Date: 20231115
  Transmission Date: 20240110
  Serious: No
  Sender: FDA-Public Use
  Company Number: US-Calliditas-2023CAL01437

PATIENT
  Sex: Male

DRUGS (1)
  1. TARPEYO [Suspect]
     Active Substance: BUDESONIDE
     Indication: IgA nephropathy

REACTIONS (4)
  - Weight increased [Unknown]
  - Cushing^s syndrome [Unknown]
  - Muscular weakness [Unknown]
  - Skin exfoliation [Unknown]
